FAERS Safety Report 15777611 (Version 1)
Quarter: 2018Q4

REPORT INFORMATION
  Report Type: Spontaneous
  Country: US (occurrence: US)
  Receive Date: 20181231
  Receipt Date: 20181231
  Transmission Date: 20190205
  Serious: No
  Sender: FDA-Public Use
  Company Number: US-009507513-1812USA004154

PATIENT
  Age: 86 Year
  Sex: Female

DRUGS (1)
  1. BELSOMRA [Suspect]
     Active Substance: SUVOREXANT
     Indication: INSOMNIA
     Dosage: TAKING ON AND OFF
     Route: 048
     Dates: start: 201806

REACTIONS (4)
  - Somnolence [Recovering/Resolving]
  - Malaise [Recovering/Resolving]
  - Wrong technique in product usage process [Unknown]
  - Headache [Recovering/Resolving]

NARRATIVE: CASE EVENT DATE: 20181203
